FAERS Safety Report 9243045 (Version 3)
Quarter: 2013Q2

REPORT INFORMATION
  Report Type: Spontaneous
  Country: US (occurrence: US)
  Receive Date: 20130419
  Receipt Date: 20130627
  Transmission Date: 20140414
  Serious: Yes (Other)
  Sender: FDA-Public Use
  Company Number: US-JNJFOC-20120411950

PATIENT
  Age: 31 Year
  Sex: Male
  Weight: 77.11 kg

DRUGS (2)
  1. LEVAQUIN [Suspect]
     Indication: CHONDRITIS
     Route: 048
     Dates: start: 20110620, end: 20110630
  2. LEVAQUIN [Suspect]
     Indication: BACTERIAL INFECTION
     Route: 048
     Dates: start: 20110620, end: 20110630

REACTIONS (3)
  - Neuropathy peripheral [Not Recovered/Not Resolved]
  - Muscle twitching [Unknown]
  - Arthralgia [Unknown]
